FAERS Safety Report 7999594-9 (Version None)
Quarter: 2011Q4

REPORT INFORMATION
  Report Type: 
  Country: None (occurrence: None)
  Receive Date: 20111221
  Receipt Date: 20111214
  Transmission Date: 20120403
  Serious: Yes (Disabling)
  Sender: FDA-Public Use
  Company Number: US-MERCK-1104USA02995

PATIENT
  Age: 51 Year
  Sex: Male

DRUGS (8)
  1. LUNESTA [Concomitant]
     Route: 048
     Dates: start: 20090819
  2. FINASTERIDE [Suspect]
     Indication: ALOPECIA
     Route: 048
     Dates: start: 20100219, end: 20100101
  3. WELLBUTRIN XL [Concomitant]
     Route: 048
     Dates: start: 20090819
  4. TRAZODONE HYDROCHLORIDE [Concomitant]
     Route: 065
  5. PROSCAR [Suspect]
     Route: 065
     Dates: start: 20100219, end: 20100101
  6. WELLBUTRIN [Suspect]
     Route: 048
     Dates: start: 20080101, end: 20110322
  7. PROPECIA [Suspect]
     Indication: ALOPECIA
     Route: 048
     Dates: start: 20100219, end: 20100101
  8. LAMICTAL [Concomitant]
     Route: 048
     Dates: start: 20090819

REACTIONS (22)
  - WRONG TECHNIQUE IN DRUG USAGE PROCESS [None]
  - TESTICULAR DISORDER [None]
  - PENIS DISORDER [None]
  - LENTIGO [None]
  - SEXUAL DYSFUNCTION [None]
  - ANXIETY [None]
  - CARPAL TUNNEL SYNDROME [None]
  - HAIR TEXTURE ABNORMAL [None]
  - ERECTILE DYSFUNCTION [None]
  - TESTICULAR PAIN [None]
  - MALE ORGASMIC DISORDER [None]
  - DEPRESSION [None]
  - DIARRHOEA [None]
  - DYSTHYMIC DISORDER [None]
  - EMOTIONAL DISTRESS [None]
  - INAPPROPRIATE SCHEDULE OF DRUG ADMINISTRATION [None]
  - PERIPHERAL COLDNESS [None]
  - HYPERSENSITIVITY [None]
  - LIBIDO DECREASED [None]
  - TESTICULAR ATROPHY [None]
  - BACK PAIN [None]
  - ORGANIC ERECTILE DYSFUNCTION [None]
